FAERS Safety Report 5134201-4 (Version None)
Quarter: 2006Q4

REPORT INFORMATION
  Report Type: 
  Country: None (occurrence: None)
  Receive Date: 20061019
  Receipt Date: 20061004
  Transmission Date: 20070319
  Serious: Yes (Life-Threatening, Hospitalization)
  Sender: FDA-Public Use
  Company Number: CIP06002401

PATIENT
  Age: 72 Year
  Sex: Female

DRUGS (7)
  1. DANTRIUM [Suspect]
     Indication: NEUROLEPTIC MALIGNANT SYNDROME
     Dosage: 40 MG DAILY; 2, 1, 2 VIALS FOR A DOSE, IV NOS
  2. LEVODOPA (LEVODOPA) [Concomitant]
  3. AMAZOLON (AMANTADINE HYDROCHLORIDE) [Concomitant]
  4. PERMAX [Concomitant]
  5. DOPS (DROXIDOPA) [Concomitant]
  6. PERMAX [Concomitant]
  7. DOPS (DROXIDOPA) [Concomitant]

REACTIONS (2)
  - GASTRIC ULCER HAEMORRHAGE [None]
  - MELAENA [None]
